FAERS Safety Report 9830574 (Version 1)
Quarter: 2014Q1

REPORT INFORMATION
  Report Type: Spontaneous
  Country: US (occurrence: US)
  Receive Date: 20140120
  Receipt Date: 20140120
  Transmission Date: 20141002
  Serious: No
  Sender: FDA-Public Use
  Company Number: US-TEVA-457285USA

PATIENT
  Age: 22 Year
  Sex: Female
  Weight: 76.73 kg

DRUGS (2)
  1. PLAN B ONE-STEP [Suspect]
     Indication: POST COITAL CONTRACEPTION
     Dosage: 1.5 MILLIGRAM DAILY;
     Route: 048
     Dates: start: 20140105, end: 20140105
  2. ALBUTEROL [Concomitant]
     Indication: ASTHMA

REACTIONS (3)
  - Vomiting [Recovered/Resolved]
  - Exposure during breast feeding [Unknown]
  - Inappropriate schedule of drug administration [Unknown]
